FAERS Safety Report 21945452 (Version 1)
Quarter: 2023Q1

REPORT INFORMATION
  Report Type: Spontaneous
  Country: CA (occurrence: CA)
  Receive Date: 20230202
  Receipt Date: 20230202
  Transmission Date: 20230418
  Serious: Yes (Other)
  Sender: FDA-Public Use
  Company Number: CA-002147023-NVSC2021CA047603

PATIENT
  Age: 62 Year
  Sex: Male

DRUGS (11)
  1. SANDOSTATIN LAR DEPOT [Suspect]
     Active Substance: OCTREOTIDE ACETATE
     Indication: Acromegaly
     Dosage: 30 MG, Q3W (1 EVERY 3 WEEKS)
     Route: 030
  2. SANDOSTATIN LAR DEPOT [Suspect]
     Active Substance: OCTREOTIDE ACETATE
  3. SANDOSTATIN LAR DEPOT [Suspect]
     Active Substance: OCTREOTIDE ACETATE
  4. PANTOPRAZOLE [Suspect]
     Active Substance: PANTOPRAZOLE
     Indication: Product used for unknown indication
     Dosage: 40 MG, QD (1 EVERY 1 DAYS)
     Route: 048
  5. TELMISARTAN [Suspect]
     Active Substance: TELMISARTAN
     Indication: Product used for unknown indication
     Dosage: 40 MG, QD (1 EVERY 1 DAYS)
     Route: 048
  6. VENLAFAXINE HYDROCHLORIDE [Suspect]
     Active Substance: VENLAFAXINE HYDROCHLORIDE
     Indication: Product used for unknown indication
     Dosage: 150 MG, QD (1 EVERY 1 DAYS)
     Route: 048
  7. ATORVASTATIN CALCIUM [Suspect]
     Active Substance: ATORVASTATIN CALCIUM
     Indication: Product used for unknown indication
     Dosage: 40 MG, QD (1 EVERY 1 DAYS)
     Route: 048
  8. DIBUCAINE [Concomitant]
     Active Substance: DIBUCAINE
     Indication: Product used for unknown indication
     Dosage: 6 DOSAGE FORM, QD (6 EVERY 1 DAY)
     Route: 061
  9. ESCULIN [Concomitant]
     Active Substance: ESCULIN
     Indication: Product used for unknown indication
     Dosage: 6 DOSAGE FORM, QD
     Route: 061
  10. FRAMYCETIN [Concomitant]
     Active Substance: FRAMYCETIN
     Indication: Product used for unknown indication
     Dosage: 6 DOSAGE FORM, QD (6 EVERY 1 DAYS)
     Route: 061
  11. METFORMIN [Concomitant]
     Active Substance: METFORMIN HYDROCHLORIDE
     Indication: Product used for unknown indication
     Dosage: 500 MG, BID (2 EVERY 1 DAYS)
     Route: 065

REACTIONS (8)
  - Back pain [Unknown]
  - Blood pressure increased [Unknown]
  - Blood pressure systolic increased [Unknown]
  - Body temperature decreased [Unknown]
  - Crohn^s disease [Unknown]
  - Diverticulitis [Unknown]
  - Drug ineffective [Unknown]
  - Inappropriate schedule of product administration [Unknown]
